FAERS Safety Report 25371452 (Version 2)
Quarter: 2025Q2

REPORT INFORMATION
  Report Type: Spontaneous
  Country: EG (occurrence: EG)
  Receive Date: 20250529
  Receipt Date: 20250606
  Transmission Date: 20250717
  Serious: Yes (Other)
  Sender: NOVO NORDISK
  Company Number: EG-NOVOPROD-1437427

PATIENT
  Age: 650 Month
  Sex: Male
  Weight: 125 kg

DRUGS (6)
  1. METOPROLOL SUCCINATE [Concomitant]
     Active Substance: METOPROLOL SUCCINATE
     Indication: Urinary tract disorder
     Route: 048
  2. CEREBROMAP [Concomitant]
     Indication: Anticoagulant therapy
     Route: 048
  3. LANTUS [Concomitant]
     Active Substance: INSULIN GLARGINE
     Indication: Type 1 diabetes mellitus
     Dosage: 20 IU, QD( (TWO HOURS AFTER DINNER)
     Route: 058
     Dates: start: 20250505
  4. NOVORAPID [Suspect]
     Active Substance: INSULIN ASPART
     Indication: Type 1 diabetes mellitus
     Dosage: 20 IU, QD(10 U BEFORE BREAKFAST AND 10 U BEFORE LUNCH)
     Route: 058
     Dates: start: 20250512
  5. NOVORAPID [Suspect]
     Active Substance: INSULIN ASPART
     Dosage: 30 IU, QD (15 U BEFORE BREAKFAST AND 15 U BEFORE LUNCH)
     Route: 058
  6. BENFOTIAMINE\CYANOCOBALAMIN\PYRIDOXINE HYDROCHLORIDE [Concomitant]
     Active Substance: BENFOTIAMINE\CYANOCOBALAMIN\PYRIDOXINE HYDROCHLORIDE
     Indication: Nervous system disorder
     Dates: start: 2014

REACTIONS (5)
  - Cataract [Not Recovered/Not Resolved]
  - Hyperglycaemia [Not Recovered/Not Resolved]
  - Hypoaesthesia [Not Recovered/Not Resolved]
  - Injection site pain [Not Recovered/Not Resolved]
  - Bone erosion [Unknown]

NARRATIVE: CASE EVENT DATE: 20250512
